FAERS Safety Report 9192852 (Version 1)
Quarter: 2013Q1

REPORT INFORMATION
  Report Type: Spontaneous
  Country: FI (occurrence: FI)
  Receive Date: 20130327
  Receipt Date: 20130327
  Transmission Date: 20140127
  Serious: Yes (Other)
  Sender: FDA-Public Use
  Company Number: FI-PFIZER INC-2013098804

PATIENT
  Sex: 0

DRUGS (1)
  1. SUNITINIB MALATE [Suspect]
     Indication: NEOPLASM MALIGNANT

REACTIONS (3)
  - Monoplegia [Unknown]
  - Disease progression [Unknown]
  - Neoplasm malignant [Unknown]
